FAERS Safety Report 9014781 (Version 1)
Quarter: 2013Q1

REPORT INFORMATION
  Report Type: Report from Study
  Country: DE (occurrence: DE)
  Receive Date: 20130115
  Receipt Date: 20130115
  Transmission Date: 20140127
  Serious: Yes (Life-Threatening, Hospitalization)
  Sender: FDA-Public Use
  Company Number: DE-BAXTER-2013BAX001276

PATIENT
  Age: 69 Year
  Sex: Female
  Weight: 67.5 kg

DRUGS (5)
  1. ENDOXAN 1G [Suspect]
     Indication: LYMPHOMA
     Route: 042
     Dates: start: 20110818, end: 20110901
  2. RITUXIMAB [Suspect]
     Indication: LYMPHOMA
     Route: 042
     Dates: start: 20110817
  3. DOXORUBICIN [Suspect]
     Indication: LYMPHOMA
     Route: 042
     Dates: start: 20110818, end: 20110901
  4. VINCRISTINE [Suspect]
     Indication: LYMPHOMA
     Route: 040
     Dates: start: 20110818, end: 20110901
  5. PREDNISONE [Suspect]
     Indication: LYMPHOMA
     Route: 048
     Dates: start: 20110818, end: 20110901

REACTIONS (1)
  - Pneumonia [Recovered/Resolved]
